FAERS Safety Report 20760866 (Version 3)
Quarter: 2022Q2

REPORT INFORMATION
  Report Type: Spontaneous
  Country: US (occurrence: US)
  Receive Date: 20220428
  Receipt Date: 20220601
  Transmission Date: 20220721
  Serious: Yes (Other)
  Sender: FDA-Public Use
  Company Number: US-JNJFOC-20220437162

PATIENT
  Age: 28 Year
  Sex: Female
  Weight: 126.21 kg

DRUGS (1)
  1. NEUTROGENA RAPID CLEAR [Suspect]
     Active Substance: SALICYLIC ACID
     Indication: Product used for unknown indication
     Dosage: TWO PADS ONE ON FACE AND ONE ON NECK
     Route: 061
     Dates: start: 20220410, end: 20220410

REACTIONS (4)
  - Burns third degree [Recovering/Resolving]
  - Hypersensitivity [Recovering/Resolving]
  - Application site discolouration [Recovering/Resolving]
  - Application site scab [Recovering/Resolving]

NARRATIVE: CASE EVENT DATE: 20220410
